FAERS Safety Report 15423321 (Version 4)
Quarter: 2018Q4

REPORT INFORMATION
  Report Type: Spontaneous
  Country: NL (occurrence: NL)
  Receive Date: 20180925
  Receipt Date: 20181109
  Transmission Date: 20190204
  Serious: Yes (Hospitalization, Other)
  Sender: FDA-Public Use
  Company Number: NL-CONCORDIA PHARMACEUTICALS INC.-GSH201809-003369

PATIENT
  Age: 30 Year
  Sex: Male

DRUGS (2)
  1. PARNATE [Suspect]
     Active Substance: TRANYLCYPROMINE SULFATE
     Indication: DEPRESSION
     Dates: start: 2008
  2. PARNATE [Suspect]
     Active Substance: TRANYLCYPROMINE SULFATE
     Dosage: CURRENT DOSE

REACTIONS (2)
  - Reversible cerebral vasoconstriction syndrome [Recovered/Resolved]
  - Subarachnoid haemorrhage [Recovered/Resolved]

NARRATIVE: CASE EVENT DATE: 20100530
